FAERS Safety Report 11430031 (Version 2)
Quarter: 2015Q3

REPORT INFORMATION
  Report Type: Spontaneous
  Country: US (occurrence: US)
  Receive Date: 20150828
  Receipt Date: 20150904
  Transmission Date: 20151125
  Serious: No
  Sender: FDA-Public Use
  Company Number: PHEH2014US022579

PATIENT
  Sex: Female

DRUGS (4)
  1. TRILEPTAL [Suspect]
     Active Substance: OXCARBAZEPINE
     Indication: ABDOMINAL PAIN UPPER
     Dosage: 300 MG, BID
     Route: 048
  2. INTUNIV [Concomitant]
     Active Substance: GUANFACINE HYDROCHLORIDE
     Route: 048
  3. TRILEPTAL [Suspect]
     Active Substance: OXCARBAZEPINE
     Indication: ANXIETY
  4. TRILEPTAL [Suspect]
     Active Substance: OXCARBAZEPINE
     Indication: MOOD SWINGS

REACTIONS (4)
  - Lymphadenopathy [Unknown]
  - Oropharyngeal pain [Unknown]
  - Ear infection [Unknown]
  - Dyspnoea [Unknown]
